FAERS Safety Report 4666832-X (Version None)
Quarter: 2005Q2

REPORT INFORMATION
  Report Type: 
  Country: None (occurrence: None)
  Receive Date: 20050518
  Receipt Date: 20050228
  Transmission Date: 20051028
  Serious: Yes (Other)
  Sender: FDA-Public Use
  Company Number: 2005024840

PATIENT
  Age: 26 Year
  Sex: Female
  Weight: 54.4316 kg

DRUGS (4)
  1. DEPO-PROVERA [Suspect]
     Indication: CONTRACEPTION
     Dosage: 150 MG ( 150 MG, 1ST INJ EVERY 3 MONTHS ) IM,  150 MG (150 MG ,Q90DAY INTERVAL, EVERY 3 MONTHS ) IM
     Route: 030
     Dates: start: 20010101, end: 20010101
  2. DEPO-PROVERA [Suspect]
     Indication: CONTRACEPTION
     Dosage: 150 MG ( 150 MG, 1ST INJ EVERY 3 MONTHS ) IM,  150 MG (150 MG ,Q90DAY INTERVAL, EVERY 3 MONTHS ) IM
     Route: 030
     Dates: start: 20030601, end: 20041201
  3. SERTRALINE HCL [Concomitant]
  4. . [Concomitant]

REACTIONS (1)
  - OSTEOPENIA [None]
